FAERS Safety Report 20671667 (Version 1)
Quarter: 2022Q2

REPORT INFORMATION
  Report Type: Spontaneous
  Country: US (occurrence: US)
  Receive Date: 20220405
  Receipt Date: 20220405
  Transmission Date: 20220721
  Serious: No
  Sender: FDA-Public Use
  Company Number: US-BIOVITRUM-2022US04488

PATIENT
  Sex: Male

DRUGS (3)
  1. SYNAGIS [Suspect]
     Active Substance: PALIVIZUMAB
     Indication: Premature baby
     Route: 030
     Dates: start: 20220202
  2. SYNAGIS [Suspect]
     Active Substance: PALIVIZUMAB
     Indication: Hypertension neonatal
  3. SYNAGIS [Suspect]
     Active Substance: PALIVIZUMAB
     Indication: Ebstein^s anomaly

REACTIONS (2)
  - Cough [Unknown]
  - Sneezing [Unknown]
